FAERS Safety Report 6278409-3 (Version None)
Quarter: 2009Q3

REPORT INFORMATION
  Report Type: 
  Country: None (occurrence: None)
  Receive Date: 20090722
  Receipt Date: 20090710
  Transmission Date: 20100115
  Serious: Yes (Hospitalization)
  Sender: FDA-Public Use
  Company Number: FR-GENENTECH-282584

PATIENT
  Sex: Female

DRUGS (2)
  1. XOLAIR [Suspect]
     Indication: ASTHMA
     Dosage: 150 MG, 1/MONTH
     Dates: start: 20070101, end: 20090401
  2. XOLAIR [Suspect]
     Dosage: 75 MG, 1/MONTH

REACTIONS (4)
  - ARTHRALGIA [None]
  - BONE PAIN [None]
  - SKIN HAEMORRHAGE [None]
  - THROMBOCYTOPENIA [None]
